FAERS Safety Report 4526224-0 (Version None)
Quarter: 2004Q4

REPORT INFORMATION
  Report Type: 
  Country: None (occurrence: None)
  Receive Date: 20041213
  Receipt Date: 20041201
  Transmission Date: 20050328
  Serious: Yes (Other)
  Sender: FDA-Public Use
  Company Number: 2004100741

PATIENT
  Sex: Male
  Weight: 70.3075 kg

DRUGS (7)
  1. SUDAFED 12 HOUR [Suspect]
     Indication: SINUS DISORDER
     Dosage: 2 TABLETS 2-3X A DAY, ORAL
     Route: 048
     Dates: start: 19890101
  2. ENALAPRIL MALEATE (ENLAPRIL MALEATE) [Concomitant]
  3. ATORVASTATIN (ATORVASTATN) [Concomitant]
  4. ESOMEPRAZOLE (ESOMEPRAZOLE) [Concomitant]
  5. CALCIUM CARBONATE (CALCIUM CARBONATE) [Concomitant]
  6. DIMETICONE, ACTIVATED (SIMETCONE) [Concomitant]
  7. ASPIRIN [Concomitant]

REACTIONS (7)
  - CONVULSION [None]
  - IATROGENIC INJURY [None]
  - INSOMNIA [None]
  - MEMORY IMPAIRMENT [None]
  - PROCEDURAL COMPLICATION [None]
  - SPINAL CORD INJURY [None]
  - SURGERY [None]
